FAERS Safety Report 4580408-4 (Version None)
Quarter: 2005Q1

REPORT INFORMATION
  Report Type: 
  Country: None (occurrence: None)
  Receive Date: 20050214
  Receipt Date: 20040116
  Transmission Date: 20050727
  Serious: No
  Sender: FDA-Public Use
  Company Number: US-GLAXOSMITHKLINE-A0493577A

PATIENT
  Age: 9 Year
  Sex: Male

DRUGS (3)
  1. LAMICTAL [Suspect]
     Indication: ILL-DEFINED DISORDER
     Dosage: 5TAB TWICE PER DAY
     Route: 048
  2. MULTIPLE MEDICATIONS [Concomitant]
  3. KLONOPIN [Concomitant]

REACTIONS (2)
  - CRYING [None]
  - STOMACH DISCOMFORT [None]
